FAERS Safety Report 26151923 (Version 1)
Quarter: 2025Q4

REPORT INFORMATION
  Report Type: Spontaneous
  Country: EU (occurrence: EU)
  Receive Date: 20251214
  Receipt Date: 20251214
  Transmission Date: 20260118
  Serious: Yes (Death, Other)
  Sender: CELLTRION
  Company Number: EU-002147023-NVSC2022PL078771

PATIENT

DRUGS (6)
  1. RITUXIMAB [Suspect]
     Active Substance: RITUXIMAB
     Indication: Product used for unknown indication
     Route: 042
  2. KYMRIAH [Suspect]
     Active Substance: TISAGENLECLEUCEL
     Indication: Product used for unknown indication
     Dosage: UNK
     Route: 065
     Dates: start: 20210719
  3. INOTUZUMAB OZOGAMICIN\RITUXIMAB [Suspect]
     Active Substance: INOTUZUMAB OZOGAMICIN\RITUXIMAB
     Indication: Product used for unknown indication
     Dosage: UNK
     Route: 042
  4. CLOFARABINE [Suspect]
     Active Substance: CLOFARABINE
     Indication: Product used for unknown indication
     Dosage: UNK
     Route: 065
  5. CYCLOPHOSPHAMIDE [Suspect]
     Active Substance: CYCLOPHOSPHAMIDE
     Indication: Product used for unknown indication
     Dosage: UNK
     Route: 065
  6. VEPESID [Suspect]
     Active Substance: ETOPOSIDE
     Indication: Product used for unknown indication
     Dosage: UNK
     Route: 065

REACTIONS (11)
  - Condition aggravated [Fatal]
  - Eyelid oedema [Unknown]
  - Bone marrow failure [Unknown]
  - CSF test abnormal [Unknown]
  - Cytokine release syndrome [Unknown]
  - Pyrexia [Recovered/Resolved]
  - Drug ineffective [Unknown]
  - Pleocytosis [Unknown]
  - Inflammation [Unknown]
  - Splenomegaly [Unknown]
  - Pyrexia [Unknown]
